FAERS Safety Report 18493868 (Version 1)
Quarter: 2020Q4

REPORT INFORMATION
  Report Type: Report from Study
  Country: None (occurrence: CA)
  Receive Date: 20201112
  Receipt Date: 20201112
  Transmission Date: 20210114
  Serious: Yes (Other)
  Sender: FDA-Public Use
  Company Number: CA-ABBVIE-20K-028-3645986-00

PATIENT
  Age: 81 Year
  Sex: Female

DRUGS (4)
  1. METHOTREXATE. [Concomitant]
     Active Substance: METHOTREXATE
     Indication: PRODUCT USED FOR UNKNOWN INDICATION
     Dates: end: 20201013
  2. RINVOQ [Suspect]
     Active Substance: UPADACITINIB
     Indication: RHEUMATOID ARTHRITIS
     Route: 048
     Dates: end: 20201013
  3. RINVOQ [Suspect]
     Active Substance: UPADACITINIB
     Route: 048
     Dates: start: 20201028
  4. METHOTREXATE. [Concomitant]
     Active Substance: METHOTREXATE
     Dates: start: 20201028

REACTIONS (6)
  - Bone cancer metastatic [Unknown]
  - Pain [Unknown]
  - Radiation associated pain [Unknown]
  - Asthenia [Recovering/Resolving]
  - Lung carcinoma cell type unspecified stage IV [Unknown]
  - Back pain [Unknown]

NARRATIVE: CASE EVENT DATE: 2020
